FAERS Safety Report 8984214 (Version 4)
Quarter: 2013Q3

REPORT INFORMATION
  Report Type: Spontaneous
  Country: GB (occurrence: GB)
  Receive Date: 20121226
  Receipt Date: 20130927
  Transmission Date: 20140515
  Serious: Yes (Other)
  Sender: FDA-Public Use
  Company Number: GB-009507513-1212USA009658

PATIENT
  Age: 28 Year
  Sex: Female
  Weight: 69.85 kg

DRUGS (1)
  1. DEXAMETHASONE [Suspect]
     Indication: INFECTION
     Dosage: UNK, ONE DAY
     Route: 042
     Dates: start: 20121210, end: 20121211

REACTIONS (1)
  - Pain in extremity [Recovering/Resolving]
